FAERS Safety Report 4823522-8 (Version None)
Quarter: 2005Q4

REPORT INFORMATION
  Report Type: 
  Country: None (occurrence: None)
  Receive Date: 20051107
  Receipt Date: 20051025
  Transmission Date: 20060501
  Serious: Yes (Death, Other)
  Sender: FDA-Public Use
  Company Number: USA-2005-0021483

PATIENT
  Age: 53 Year
  Sex: Female

DRUGS (2)
  1. OXYCONTIN [Suspect]
     Indication: CANCER PAIN
     Dosage: ORAL
     Route: 048
  2. OXYCODONE HCL [Suspect]
     Indication: DRUG USE FOR UNKNOWN INDICATION
     Dosage: ORAL
     Route: 048

REACTIONS (4)
  - BREAST CANCER [None]
  - CONDITION AGGRAVATED [None]
  - DYSPHAGIA [None]
  - METASTATIC MALIGNANT MELANOMA [None]
